FAERS Safety Report 9741992 (Version 2)
Quarter: 2014Q1

REPORT INFORMATION
  Report Type: Spontaneous
  Country: US (occurrence: US)
  Receive Date: 20131210
  Receipt Date: 20140110
  Transmission Date: 20141002
  Serious: No
  Sender: FDA-Public Use
  Company Number: US-PFIZER INC-2013349799

PATIENT
  Age: 77 Year
  Sex: Male
  Weight: 77.1 kg

DRUGS (2)
  1. TIKOSYN [Suspect]
     Indication: ATRIAL FIBRILLATION
     Dosage: 0.25 MG, 2X/DAY
     Route: 048
     Dates: start: 20131112
  2. TIKOSYN [Suspect]
     Indication: ATRIAL FLUTTER

REACTIONS (1)
  - Headache [Unknown]
